FAERS Safety Report 16352305 (Version 1)
Quarter: 2019Q2

REPORT INFORMATION
  Report Type: Report from Study
  Country: DE (occurrence: DE)
  Receive Date: 20190524
  Receipt Date: 20190524
  Transmission Date: 20190711
  Serious: Yes (Death, Life-Threatening)
  Sender: FDA-Public Use
  Company Number: DE-TEVA-2019-DE-1053159

PATIENT
  Age: 45 Year
  Sex: Male
  Weight: 88 kg

DRUGS (72)
  1. PREDNISOLONE. [Suspect]
     Active Substance: PREDNISOLONE
     Route: 061
     Dates: start: 19981204, end: 19981204
  2. KONAKION [Suspect]
     Active Substance: PHYTONADIONE
     Route: 042
     Dates: end: 19981112
  3. ZIENAM [Suspect]
     Active Substance: CILASTATIN SODIUM\IMIPENEM
     Indication: INFECTION
     Route: 042
     Dates: start: 19981205, end: 19990101
  4. LASIX [Suspect]
     Active Substance: FUROSEMIDE
     Indication: OEDEMA
     Route: 042
     Dates: start: 19981126, end: 19981126
  5. CANDIO-HERMAL [Concomitant]
     Active Substance: NYSTATIN
     Indication: CANDIDA INFECTION
     Route: 061
     Dates: start: 19981204, end: 19981204
  6. DIPEPTAMIN [Concomitant]
     Indication: PARENTERAL NUTRITION
     Dosage: INTERMITTENT THERAPY.
     Route: 042
     Dates: end: 19981128
  7. GRANOCYTE [Concomitant]
     Active Substance: LENOGRASTIM
     Indication: BONE MARROW TRANSPLANT
     Route: 042
     Dates: end: 19981128
  8. SODIUM BICARBONATE. [Concomitant]
     Active Substance: SODIUM BICARBONATE
     Indication: ACIDOSIS
     Dosage: INTERMITTENT THERAPY.
     Route: 042
     Dates: start: 19981201, end: 19981206
  9. AMPHO-MORONAL [Concomitant]
     Active Substance: AMPHOTERICIN B
     Indication: ANTIFUNGAL PROPHYLAXIS
     Route: 048
     Dates: start: 19981111
  10. AMINOPLASMAL [Concomitant]
     Active Substance: AMINO ACIDS
     Indication: PARENTERAL NUTRITION
     Dosage: INTERMITTENT THERAPY.
     Route: 042
     Dates: start: 19981013
  11. VANCOMYCIN [Concomitant]
     Active Substance: VANCOMYCIN
     Indication: INFECTION
     Dosage: INTERMITTENT THERAPY
     Route: 042
     Dates: start: 19981111
  12. FORTUM [Suspect]
     Active Substance: CEFTAZIDIME
     Dates: start: 19981111, end: 19981120
  13. TOBRAMYCIN. [Suspect]
     Active Substance: TOBRAMYCIN
     Indication: INFECTION
     Route: 042
     Dates: start: 19981114, end: 19981119
  14. REMERGIL [Suspect]
     Active Substance: MIRTAZAPINE
     Indication: DEPRESSION
     Route: 048
     Dates: start: 19981203, end: 19981203
  15. REMERGIL [Suspect]
     Active Substance: MIRTAZAPINE
     Route: 048
     Dates: start: 19981126, end: 19981130
  16. BACTRIM [Suspect]
     Active Substance: SULFAMETHOXAZOLE\TRIMETHOPRIM
     Route: 042
     Dates: start: 19981113, end: 19981120
  17. NOVALGIN (METAMIZOLE SODIUM) [Suspect]
     Active Substance: METAMIZOLE SODIUM
     Route: 042
     Dates: start: 19981111, end: 19981121
  18. AQUAPHOR [Concomitant]
     Active Substance: PETROLATUM
     Indication: OEDEMA
     Route: 048
     Dates: start: 19981120, end: 19981120
  19. PENTAGLOBIN [Concomitant]
     Active Substance: HUMAN IMMUNOGLOBULIN G
     Indication: BONE MARROW TRANSPLANT
     Dosage: GIVEN ON 15, 19, 26 NOV ONLY
     Route: 042
     Dates: start: 19981115, end: 19981126
  20. TAVEGIL [Concomitant]
     Active Substance: CLEMASTINE FUMARATE
     Indication: GRAFT VERSUS HOST DISEASE
     Route: 042
     Dates: start: 19981118, end: 19981121
  21. MTX [Concomitant]
     Active Substance: METHOTREXATE SODIUM
     Indication: BONE MARROW TRANSPLANT
     Route: 042
     Dates: start: 19981111, end: 19981111
  22. FUROSEMID [Suspect]
     Active Substance: FUROSEMIDE
     Route: 042
     Dates: start: 19981208
  23. TOBRAMYCIN. [Suspect]
     Active Substance: TOBRAMYCIN
     Route: 042
     Dates: start: 19981121, end: 19981121
  24. VOMEX A [Suspect]
     Active Substance: DIMENHYDRINATE
     Indication: NAUSEA
     Route: 042
     Dates: start: 19981118, end: 19981130
  25. NOVALGIN (METAMIZOLE SODIUM) [Suspect]
     Active Substance: METAMIZOLE SODIUM
     Route: 042
     Dates: end: 19981208
  26. NOVALGIN (METAMIZOLE SODIUM) [Suspect]
     Active Substance: METAMIZOLE SODIUM
     Dosage: 1 G
     Route: 042
     Dates: start: 19981205, end: 19981205
  27. AMBISOME [Suspect]
     Active Substance: AMPHOTERICIN B
     Indication: FUNGAL INFECTION
     Route: 042
     Dates: start: 19981122, end: 19990101
  28. NEUPOGEN [Suspect]
     Active Substance: FILGRASTIM
     Indication: BONE MARROW TRANSPLANT
     Route: 042
     Dates: start: 19981127, end: 19981130
  29. SOLU-DECORTIN H [Concomitant]
     Indication: GRAFT VERSUS HOST DISEASE
     Route: 042
     Dates: start: 19981119, end: 19981121
  30. PEPDUL [Concomitant]
     Active Substance: FAMOTIDINE
     Indication: PROPHYLAXIS
     Route: 042
     Dates: end: 19981110
  31. TARIVID [Concomitant]
     Active Substance: OFLOXACIN
     Indication: INFECTION
     Route: 042
     Dates: end: 19981110
  32. ZOVIRAX [Concomitant]
     Active Substance: ACYCLOVIR
     Indication: PROPHYLAXIS
     Route: 042
     Dates: end: 19981122
  33. ZIENAM [Suspect]
     Active Substance: CILASTATIN SODIUM\IMIPENEM
     Route: 042
     Dates: start: 19981205, end: 19990101
  34. ACTRAPID [Concomitant]
     Active Substance: INSULIN HUMAN
     Indication: DIABETES MELLITUS
     Route: 042
     Dates: start: 19981115, end: 19981207
  35. CLONT [Concomitant]
     Indication: INFECTION
     Route: 042
  36. GENTAMYCIN [Suspect]
     Active Substance: GENTAMICIN
     Indication: CONJUNCTIVITIS
     Dosage: 1 DROP PER EYE TWICE DAILY
     Route: 047
     Dates: start: 19981129, end: 19981129
  37. CIPROBAY INFUSIONSLOESUNG [Suspect]
     Active Substance: CIPROFLOXACIN
     Indication: CYSTITIS
     Route: 042
     Dates: start: 19981130, end: 19990101
  38. ZIENAM [Suspect]
     Active Substance: CILASTATIN SODIUM\IMIPENEM
     Route: 042
     Dates: start: 19981120, end: 19981128
  39. NOVALGIN (METAMIZOLE SODIUM) [Suspect]
     Active Substance: METAMIZOLE SODIUM
     Indication: PAIN
     Dosage: IRREGULAR/UNKNOWN DOSING.
     Route: 042
     Dates: start: 19981124, end: 19981128
  40. URBASON SOLUBILE [Suspect]
     Active Substance: METHYLPREDNISOLONE SODIUM SUCCINATE
     Indication: GRAFT VERSUS HOST DISEASE
     Route: 042
     Dates: start: 19981121, end: 19990101
  41. GLUCOSE [Concomitant]
     Active Substance: DEXTROSE
     Indication: PARENTERAL NUTRITION
     Dosage: 10, 40 OR 70% SOLUTIONS.
     Route: 042
  42. ANTRA [Concomitant]
     Active Substance: OMEPRAZOLE
     Indication: PROPHYLAXIS
     Route: 042
     Dates: start: 19981113
  43. INZOLEN [Concomitant]
     Active Substance: MAGNESIUM ASPARTATE\POTASSIUM ASPARTATE
     Indication: ELECTROLYTE SUBSTITUTION THERAPY
     Route: 042
  44. AMPHO-MORONAL LUTSCHTABLETTEN [Concomitant]
     Indication: ANTIFUNGAL PROPHYLAXIS
     Route: 048
     Dates: end: 19981110
  45. FORTUM [Suspect]
     Active Substance: CEFTAZIDIME
     Indication: INFECTION
     Route: 042
     Dates: start: 19981126, end: 19981205
  46. FUROSEMID [Suspect]
     Active Substance: FUROSEMIDE
     Route: 042
     Dates: start: 19981202, end: 19981203
  47. RESONIUM A [Suspect]
     Active Substance: SODIUM POLYSTYRENE SULFONATE
     Indication: HYPERKALAEMIA
     Route: 048
     Dates: start: 19981129, end: 19981129
  48. DOPAMIN [DOPAMINE HYDROCHLORIDE] [Suspect]
     Active Substance: DOPAMINE HYDROCHLORIDE
     Indication: HYPOTENSION
     Route: 042
     Dates: start: 19981119, end: 19990101
  49. DIFLUCAN [Suspect]
     Active Substance: FLUCONAZOLE
     Indication: ANTIFUNGAL PROPHYLAXIS
     Route: 042
     Dates: end: 19981119
  50. TAVOR (LORAZEPAM) [Suspect]
     Active Substance: LORAZEPAM
     Indication: SEDATION
     Route: 042
     Dates: end: 19981125
  51. SODIUM CHLORIDE. [Concomitant]
     Active Substance: SODIUM CHLORIDE
     Indication: HYPONATRAEMIA
     Route: 042
     Dates: start: 19981113
  52. DOLANTIN [Concomitant]
     Active Substance: MEPERIDINE
     Indication: SEDATION
     Dosage: INTERMITTENT THERAPY
     Route: 042
     Dates: start: 19981111, end: 19981121
  53. AMINOMIX [Concomitant]
     Indication: PARENTERAL NUTRITION
     Dosage: INTERMITTENT THERAPY.
     Route: 042
     Dates: end: 19981129
  54. MORPHIN [Concomitant]
     Active Substance: MORPHINE
     Indication: SEDATION
     Route: 042
     Dates: start: 19981111, end: 19981123
  55. AMPHO-MORONAL [Concomitant]
     Active Substance: AMPHOTERICIN B
     Route: 055
     Dates: end: 19981122
  56. FUROSEMID [Suspect]
     Active Substance: FUROSEMIDE
     Indication: OEDEMA
     Route: 042
     Dates: start: 19981205, end: 19981205
  57. PREDNISOLONE. [Suspect]
     Active Substance: PREDNISOLONE
     Indication: CONJUNCTIVITIS
     Route: 061
     Dates: start: 19981207, end: 19990101
  58. KONAKION [Suspect]
     Active Substance: PHYTONADIONE
     Indication: COAGULOPATHY
     Dosage: IRREGULAR/UNKNOWN DOSING.
     Route: 042
     Dates: start: 19981123, end: 19981207
  59. BACTRIM [Suspect]
     Active Substance: SULFAMETHOXAZOLE\TRIMETHOPRIM
     Indication: INFECTION
     Route: 042
     Dates: start: 19981204, end: 19981206
  60. CYMEVEN IV [Suspect]
     Active Substance: GANCICLOVIR
     Route: 042
     Dates: start: 19981127, end: 19990101
  61. AMPHOTERICIN B. [Concomitant]
     Active Substance: AMPHOTERICIN B
     Indication: FUNGAL INFECTION
     Dosage: LEVEL 1/DAY.
     Route: 042
     Dates: start: 19981117, end: 19981121
  62. INTRALIPID [Concomitant]
     Active Substance: EGG PHOSPHOLIPIDS\GLYCERIN\SOYBEAN OIL
     Indication: PARENTERAL NUTRITION
     Route: 042
  63. ACC [Concomitant]
     Active Substance: ACETYLCYSTEINE
     Indication: UNEVALUABLE EVENT
     Route: 042
     Dates: start: 19981117, end: 19981119
  64. CALCIUM [Concomitant]
     Active Substance: CALCIUM
     Indication: BLOOD CALCIUM DECREASED
     Route: 042
  65. VITAMIN [Concomitant]
     Active Substance: VITAMINS
     Indication: NUTRITIONAL SUPPLEMENTATION
     Route: 042
  66. FUROSEMID [Suspect]
     Active Substance: FUROSEMIDE
     Route: 042
     Dates: start: 19981013, end: 19981029
  67. BACTRIM [Suspect]
     Active Substance: SULFAMETHOXAZOLE\TRIMETHOPRIM
     Route: 042
     Dates: start: 19981127, end: 19981129
  68. MAGNESIUM VERLA [Concomitant]
     Active Substance: MAGNESIUM
     Indication: BLOOD MAGNESIUM DECREASED
     Dosage: INTERMITTENT THERAPY.
     Route: 042
     Dates: end: 19981202
  69. SANDIMMUN [Concomitant]
     Active Substance: CYCLOSPORINE
     Indication: BONE MARROW TRANSPLANT
     Route: 042
  70. KALIUMCHLORID [Concomitant]
     Active Substance: POTASSIUM CHLORIDE
     Indication: HYPOKALAEMIA
     Dosage: INTERMITTENT THERAPY.
     Route: 042
  71. SOLUVIT [Concomitant]
     Active Substance: VITAMINS
     Indication: PARENTERAL NUTRITION
     Route: 042
  72. PROSTAVASIN [Concomitant]
     Active Substance: ALPROSTADIL ALFADEX
     Indication: CARDIOVASCULAR DISORDER
     Route: 042
     Dates: start: 19981111, end: 19981119

REACTIONS (2)
  - Graft versus host disease [Fatal]
  - Toxic epidermal necrolysis [Fatal]

NARRATIVE: CASE EVENT DATE: 19981121
